FAERS Safety Report 20834393 (Version 1)
Quarter: 2022Q2

REPORT INFORMATION
  Report Type: Report from Study
  Country: US (occurrence: US)
  Receive Date: 20220516
  Receipt Date: 20220516
  Transmission Date: 20220721
  Serious: No
  Sender: FDA-Public Use
  Company Number: US-SUNOVION-2022SUN001501

PATIENT
  Age: 72 Year
  Sex: Female

DRUGS (1)
  1. KYNMOBI [Suspect]
     Active Substance: APOMORPHINE HYDROCHLORIDE
     Dosage: 10 MG
     Route: 060
     Dates: start: 20220428

REACTIONS (6)
  - Dysstasia [Unknown]
  - Feeling hot [Unknown]
  - Paraesthesia [Unknown]
  - Feeling abnormal [Unknown]
  - Yawning [Unknown]
  - Somnolence [Unknown]

NARRATIVE: CASE EVENT DATE: 20220507
